FAERS Safety Report 9450844 (Version 1)
Quarter: 2013Q3

REPORT INFORMATION
  Report Type: Spontaneous
  Country: US (occurrence: US)
  Receive Date: 20130809
  Receipt Date: 20130809
  Transmission Date: 20140515
  Serious: No
  Sender: FDA-Public Use
  Company Number: US-PFIZER INC-2013230662

PATIENT
  Age: 23 Year
  Sex: Female
  Weight: 68.03 kg

DRUGS (2)
  1. ADVIL PM [Suspect]
     Indication: INSOMNIA
     Dosage: UNK, ONCE A DAY
     Route: 048
     Dates: start: 20130731, end: 20130804
  2. ADVIL PM [Suspect]
     Indication: BACK PAIN

REACTIONS (1)
  - Nightmare [Not Recovered/Not Resolved]
